FAERS Safety Report 4524113-9 (Version None)
Quarter: 2004Q4

REPORT INFORMATION
  Report Type: 
  Country: None (occurrence: None)
  Receive Date: 20041209
  Receipt Date: 20041129
  Transmission Date: 20050328
  Serious: Yes (Other)
  Sender: FDA-Public Use
  Company Number: 2004100287

PATIENT
  Age: 68 Year
  Sex: Male

DRUGS (1)
  1. SULPERAZONE (SULBACTAM, CEFOPERAZONE) [Suspect]
     Indication: ILL-DEFINED DISORDER
     Dosage: 1 GRAM, INTRAVENOUS
     Route: 042
     Dates: start: 20010111, end: 20040111

REACTIONS (1)
  - SHOCK [None]
